FAERS Safety Report 19660374 (Version 1)
Quarter: 2021Q3

REPORT INFORMATION
  Report Type: Report from Study
  Country: BR (occurrence: BR)
  Receive Date: 20210805
  Receipt Date: 20210805
  Transmission Date: 20211014
  Serious: Yes (Hospitalization, Other)
  Sender: FDA-Public Use
  Company Number: NVSC2021BR170705

PATIENT
  Age: 53 Year
  Sex: Male

DRUGS (5)
  1. ESCITALOPRAM [Suspect]
     Active Substance: ESCITALOPRAM OXALATE
     Indication: DEPRESSION
     Dosage: UNK
     Route: 065
  2. PREDNISONE. [Suspect]
     Active Substance: PREDNISONE
     Indication: PRODUCT USED FOR UNKNOWN INDICATION
     Dosage: UNK
     Route: 065
  3. METHOTREXATE. [Concomitant]
     Active Substance: METHOTREXATE
     Indication: PRODUCT USED FOR UNKNOWN INDICATION
     Dosage: UNK
     Route: 065
  4. FOLIC ACID. [Concomitant]
     Active Substance: FOLIC ACID
     Indication: PROPHYLAXIS
     Dosage: UNK
     Route: 065
  5. COSENTYX [Suspect]
     Active Substance: SECUKINUMAB
     Indication: PSORIATIC ARTHROPATHY
     Dosage: 2 DF (2 PENS), UNKNOWN
     Route: 065

REACTIONS (32)
  - Skin exfoliation [Unknown]
  - Weight decreased [Recovered/Resolved]
  - Decreased appetite [Unknown]
  - Skin discolouration [Unknown]
  - Dysphonia [Recovered/Resolved]
  - Hypertension [Recovering/Resolving]
  - Retching [Unknown]
  - Blood pressure abnormal [Unknown]
  - Malaise [Recovered/Resolved]
  - Headache [Unknown]
  - Vomiting [Unknown]
  - Pruritus [Not Recovered/Not Resolved]
  - Yellow skin [Unknown]
  - Ataxia [Recovered/Resolved]
  - Memory impairment [Not Recovered/Not Resolved]
  - Spinal fracture [Unknown]
  - Pain [Unknown]
  - Spinal pain [Not Recovered/Not Resolved]
  - Weight increased [Unknown]
  - Pain in extremity [Unknown]
  - Hepatitis [Recovered/Resolved]
  - Tuberculosis [Unknown]
  - Hunger [Unknown]
  - Limb injury [Not Recovered/Not Resolved]
  - Psoriasis [Not Recovered/Not Resolved]
  - Liver disorder [Unknown]
  - Fall [Unknown]
  - Hepatitis [Recovered/Resolved]
  - Taste disorder [Recovered/Resolved]
  - Visual impairment [Recovered/Resolved]
  - Movement disorder [Recovered/Resolved]
  - Gastritis [Unknown]

NARRATIVE: CASE EVENT DATE: 2017
